FAERS Safety Report 4452050-7 (Version None)
Quarter: 2004Q3

REPORT INFORMATION
  Report Type: 
  Country: None (occurrence: None)
  Receive Date: 20040915
  Receipt Date: 20040915
  Transmission Date: 20050211
  Serious: Yes (Other)
  Sender: FDA-Public Use
  Company Number: None

PATIENT
  Age: 52 Year
  Weight: 100.45 kg

DRUGS (7)
  1. VANCOMYCIN 1GM/ 200ML BAXTER SOLUTION [Suspect]
     Indication: PNEUMONIA
     Dosage: 1 GM Q12H IV
     Route: 042
     Dates: start: 20040823, end: 20040831
  2. NITROGLYCERIN [Concomitant]
  3. ZITHROMAX [Concomitant]
  4. NIFEDIPINE [Concomitant]
  5. LISINOPRIL [Concomitant]
  6. RIFAMPICIN [Concomitant]
  7. ASPIRIN [Concomitant]

REACTIONS (1)
  - CHEST PAIN [None]
